FAERS Safety Report 11724552 (Version 2)
Quarter: 2015Q4

REPORT INFORMATION
  Report Type: Spontaneous
  Country: US (occurrence: US)
  Receive Date: 20151111
  Receipt Date: 20151111
  Transmission Date: 20160304
  Serious: No
  Sender: FDA-Public Use
  Company Number: US-UCBSA-2015009987

PATIENT
  Age: 51 Year
  Sex: Female
  Weight: 54.43 kg

DRUGS (7)
  1. VIMPAT [Suspect]
     Active Substance: LACOSAMIDE
     Indication: SEIZURE
     Dosage: UNK
     Route: 048
     Dates: start: 2015, end: 2015
  2. TRILEPTAL [Concomitant]
     Active Substance: OXCARBAZEPINE
     Indication: SEIZURE
     Dosage: 130 MG AND 225 MG EVENING
     Dates: start: 2005
  3. VIMPAT [Suspect]
     Active Substance: LACOSAMIDE
     Dosage: DOSE WAS TITRATED TO 50 MG
     Route: 048
     Dates: start: 201503, end: 20150322
  4. TRILEPTAL [Concomitant]
     Active Substance: OXCARBAZEPINE
     Dosage: A DOSING CHANGES (INCREASED), STOPPED
     Dates: start: 201501
  5. TRILEPTAL [Concomitant]
     Active Substance: OXCARBAZEPINE
     Dosage: RESTARTED AT UNK DOSE
  6. VIMPAT [Suspect]
     Active Substance: LACOSAMIDE
     Indication: SEIZURE
     Dosage: UNK
     Route: 042
     Dates: start: 20150206, end: 201502
  7. VITAMIN D3 [Concomitant]
     Active Substance: CHOLECALCIFEROL
     Indication: VITAMIN SUPPLEMENTATION
     Dosage: 400 MG
     Route: 048

REACTIONS (10)
  - Tinnitus [Recovering/Resolving]
  - Haematochezia [Not Recovered/Not Resolved]
  - Vision blurred [Recovering/Resolving]
  - Anger [Recovering/Resolving]
  - Oral discomfort [Not Recovered/Not Resolved]
  - Agitation [Recovering/Resolving]
  - Crying [Recovering/Resolving]
  - Nervousness [Recovering/Resolving]
  - Amnesia [Recovering/Resolving]
  - Ear discomfort [Recovering/Resolving]

NARRATIVE: CASE EVENT DATE: 201503
